FAERS Safety Report 9549454 (Version 1)
Quarter: 2013Q2

REPORT INFORMATION
  Report Type: Spontaneous
  Country: US (occurrence: None)
  Receive Date: 20130627
  Receipt Date: 20130627
  Transmission Date: 20140414
  Serious: No
  Sender: FDA-Public Use
  Company Number: 1000043938

PATIENT
  Age: 50 Year
  Sex: Female

DRUGS (10)
  1. LINZESS (LINACLOTIDE) (290 MICROGRAM, CAPSULES) [Suspect]
     Indication: CONSTIPATION
     Route: 048
     Dates: start: 20130214
  2. PROTONIX (PANTOPRAZOLE SODIUM SESQUIHYDRATE) [Concomitant]
  3. PAXIL (PAROXETINE HYDROCHLORIDE) [Concomitant]
  4. REQUIP (ROPINIROLE HYDROCHLORIDE) [Concomitant]
  5. ZOCOR (SIMVASTATIN) [Concomitant]
  6. TRAZODONE [Concomitant]
  7. MVI (VITAMINS NOS) [Concomitant]
  8. VITAMIN B12 [Concomitant]
  9. VITAMIN B6 (PYRIDOXINE HYDROCHLORIDE) [Concomitant]
  10. VITAMIN D3 (COLECALCIFEROL) [Concomitant]

REACTIONS (4)
  - Bronchitis [None]
  - Sinusitis [None]
  - Diarrhoea [None]
  - Drug ineffective [None]
